FAERS Safety Report 8263725-6 (Version None)
Quarter: 2012Q2

REPORT INFORMATION
  Report Type: 
  Country: None (occurrence: None)
  Receive Date: 20120405
  Receipt Date: 20120322
  Transmission Date: 20120825
  Serious: Yes (Other)
  Sender: FDA-Public Use
  Company Number: VE-ROCHE-1053999

PATIENT
  Sex: Female

DRUGS (6)
  1. KETOTIFEN FUMARATE [Concomitant]
  2. XOLAIR [Suspect]
     Indication: ASTHMA
     Route: 065
     Dates: start: 20120105
  3. XOLAIR [Suspect]
     Route: 065
     Dates: end: 20120304
  4. XOLAIR [Suspect]
     Route: 065
     Dates: start: 20120205
  5. UNASYN [Concomitant]
  6. XOLAIR [Suspect]
     Route: 065
     Dates: start: 20120115

REACTIONS (2)
  - LUNG DISORDER [None]
  - DRUG INEFFECTIVE [None]
